FAERS Safety Report 10089683 (Version 1)
Quarter: 2014Q2

REPORT INFORMATION
  Report Type: Spontaneous
  Country: US (occurrence: None)
  Receive Date: 20140418
  Receipt Date: 20140418
  Transmission Date: 20141212
  Serious: Yes (Other)
  Sender: FDA-Public Use
  Company Number: None

PATIENT
  Age: 6 Year
  Sex: Female
  Weight: 20.87 kg

DRUGS (1)
  1. SINGULAIR [Suspect]
     Dosage: 1 TABLET QD ORAL
     Route: 048

REACTIONS (2)
  - Anxiety [None]
  - Panic attack [None]
